FAERS Safety Report 9456339 (Version 1)
Quarter: 2013Q3

REPORT INFORMATION
  Report Type: Spontaneous
  Country: US (occurrence: None)
  Receive Date: 20130812
  Receipt Date: 20130812
  Transmission Date: 20140515
  Serious: No
  Sender: FDA-Public Use
  Company Number: None

PATIENT
  Age: 58 Year
  Sex: Male
  Weight: 99.79 kg

DRUGS (1)
  1. FENTANYL TRANSDERMAL SYSTEM [Suspect]
     Indication: BACK PAIN
     Dosage: 1 PATCH AS NEEDED APPLIED AS MEDICATED PATCH TO SKIN
     Dates: start: 20130712, end: 20130811

REACTIONS (5)
  - Product adhesion issue [None]
  - Product substitution issue [None]
  - Product physical issue [None]
  - Blister [None]
  - Application site vesicles [None]
